FAERS Safety Report 10081883 (Version 1)
Quarter: 2014Q2

REPORT INFORMATION
  Report Type: Spontaneous
  Country: US (occurrence: None)
  Receive Date: 20140415
  Receipt Date: 20140415
  Transmission Date: 20141212
  Serious: Yes (Disabling)
  Sender: FDA-Public Use
  Company Number: None

PATIENT
  Age: 82 Year
  Sex: Male

DRUGS (9)
  1. TAFINLAR [Suspect]
     Route: 048
     Dates: start: 201311
  2. XERALTO [Concomitant]
  3. AMLODIPINE [Concomitant]
  4. ATENOLOL [Concomitant]
  5. PANTOPRAZOLE [Concomitant]
  6. SYNTHROID [Concomitant]
  7. ASPIRIN [Concomitant]
  8. NITROGLYCERIN [Concomitant]
  9. FENOFIBRATE [Concomitant]

REACTIONS (5)
  - Chills [None]
  - Pyrexia [None]
  - Vomiting [None]
  - Weight decreased [None]
  - Feeling abnormal [None]
